FAERS Safety Report 7402133-4 (Version None)
Quarter: 2011Q1

REPORT INFORMATION
  Report Type: 
  Country: None (occurrence: None)
  Receive Date: 20110331
  Receipt Date: 20110321
  Transmission Date: 20110831
  Serious: Yes (Other)
  Sender: FDA-Public Use
  Company Number: 869054

PATIENT
  Age: 77 Year
  Sex: Female

DRUGS (9)
  1. CIPROFLOXACIN [Suspect]
     Indication: URINARY TRACT INFECTION
  2. SIMVASTATIN [Suspect]
     Indication: PRODUCT USED FOR UNKNOWN INDICATION
     Dosage: 40 MG MILLIGRAM(S)
  3. ASPIRIN [Concomitant]
  4. ISOSORBIDE MONONITRATE [Concomitant]
  5. LEVOTHYROXINE SODIUM [Concomitant]
  6. FUROSEMIDE [Concomitant]
  7. (NICORANDIL) [Concomitant]
  8. CIMETIDINE [Concomitant]
  9. PINDOLOL [Concomitant]

REACTIONS (4)
  - DRUG INTERACTION [None]
  - RHABDOMYOLYSIS [None]
  - URINARY TRACT INFECTION [None]
  - POLYMYOSITIS [None]
